FAERS Safety Report 8769376 (Version 1)
Quarter: 2012Q4

REPORT INFORMATION
  Report Type: 
  Country: US (occurrence: US)
  Receive Date: 20120905
  Receipt Date: 20120905
  Transmission Date: 20130627
  Serious: Yes (Death)
  Sender: FDA-Public Use
  Company Number: US-PURDUE-USA-2012-0092303

PATIENT
  Age: 80 Year

DRUGS (3)
  1. BUTRANS [Suspect]
     Indication: BACK PAIN
     Dosage: 5 mcg/hr, see text
  2. BUTRANS [Suspect]
     Dosage: 10 mcg/hr, see text
  3. BUTRANS [Suspect]
     Dosage: 20 mcg/hr, see text

REACTIONS (2)
  - Inadequate analgesia [Unknown]
  - Death [Fatal]
